FAERS Safety Report 5067174-3 (Version None)
Quarter: 2006Q3

REPORT INFORMATION
  Report Type: 
  Country: None (occurrence: None)
  Receive Date: 20060727
  Receipt Date: 20060714
  Transmission Date: 20061208
  Serious: Yes (Other)
  Sender: FDA-Public Use
  Company Number: 2006087267

PATIENT
  Age: 12 Month

DRUGS (1)
  1. ZYVOX [Suspect]
     Indication: DRUG USE FOR UNKNOWN INDICATION
     Dosage: PARENTERAL
     Route: 051
     Dates: start: 20060701

REACTIONS (1)
  - FLUSHING [None]
